FAERS Safety Report 4960356-8 (Version None)
Quarter: 2006Q1

REPORT INFORMATION
  Report Type: 
  Country: None (occurrence: None)
  Receive Date: 20060328
  Receipt Date: 20060317
  Transmission Date: 20060701
  Serious: Yes (Other)
  Sender: FDA-Public Use
  Company Number: 2006038495

PATIENT
  Age: 55 Year
  Sex: Female

DRUGS (1)
  1. EPELIN KAPSEALS (PHENYTOIN SODIUM) [Suspect]
     Indication: EPILEPSY
     Dosage: 200 MG (100 MG, 2 IN 1 D), ORAL
     Route: 048
     Dates: start: 19810101, end: 20060301

REACTIONS (6)
  - CONDITION AGGRAVATED [None]
  - CONVULSION [None]
  - DRUG DOSE OMISSION [None]
  - MOUTH INJURY [None]
  - TONGUE DISORDER [None]
  - TONGUE INJURY [None]
